FAERS Safety Report 21683941 (Version 1)
Quarter: 2022Q4

REPORT INFORMATION
  Report Type: Spontaneous
  Country: US (occurrence: None)
  Receive Date: 20221202
  Receipt Date: 20221202
  Transmission Date: 20230113
  Serious: No
  Sender: FDA-Public Use
  Company Number: None

PATIENT
  Age: 79 Year
  Sex: Female
  Weight: 95.71 kg

DRUGS (2)
  1. ORENCIA [Suspect]
     Active Substance: ABATACEPT
     Indication: Senile osteoporosis
     Dosage: INFUSE 750MG INTRAVENOUSLY OVER 1 HOUR AT WEEK 0.2 AND 4  AS DIRECTED?
     Route: 042
     Dates: start: 202205
  2. ORENCIA [Suspect]
     Active Substance: ABATACEPT
     Indication: Rheumatoid arthritis

REACTIONS (2)
  - Urinary tract infection [None]
  - Therapy interrupted [None]
